FAERS Safety Report 4692202-4 (Version None)
Quarter: 2005Q2

REPORT INFORMATION
  Report Type: 
  Country: None (occurrence: None)
  Receive Date: 20050615
  Receipt Date: 20050602
  Transmission Date: 20051028
  Serious: Yes (Other)
  Sender: FDA-Public Use
  Company Number: 2005-0008391

PATIENT
  Age: 41 Year
  Sex: Male
  Weight: 54 kg

DRUGS (4)
  1. TRUVADA [Suspect]
     Indication: HIV INFECTION
     Dosage: 1 DOSAGE FORMS, 1 IN 1 D, ORAL
     Route: 048
     Dates: start: 20050414, end: 20050422
  2. ATAZANAVIR SULFATE [Concomitant]
  3. RITONAVIR (RITONAVIR) [Concomitant]
  4. BACTRIM [Concomitant]

REACTIONS (3)
  - BLISTER [None]
  - RASH GENERALISED [None]
  - RASH MACULAR [None]
